FAERS Safety Report 25071979 (Version 1)
Quarter: 2025Q1

REPORT INFORMATION
  Report Type: Spontaneous
  Country: CH (occurrence: CH)
  Receive Date: 20250313
  Receipt Date: 20250313
  Transmission Date: 20250409
  Serious: Yes (Other)
  Sender: CHEPLAPHARM
  Company Number: CH-ROCHE-10000218980

PATIENT
  Sex: Male

DRUGS (9)
  1. CAPECITABINE [Suspect]
     Active Substance: CAPECITABINE
     Indication: Rectal cancer metastatic
  2. BEVACIZUMAB [Suspect]
     Active Substance: BEVACIZUMAB
     Indication: Rectal cancer metastatic
  3. FLUOROURACIL [Suspect]
     Active Substance: FLUOROURACIL
     Indication: Rectal cancer metastatic
  4. LEUCOVORIN CALCIUM [Concomitant]
     Active Substance: LEUCOVORIN CALCIUM
     Dates: start: 202303
  5. OXALIPLATIN [Concomitant]
     Active Substance: OXALIPLATIN
     Dates: start: 202303, end: 202308
  6. CETUXIMAB [Concomitant]
     Active Substance: CETUXIMAB
     Dates: start: 202303, end: 202308
  7. IRINOTECAN HYDROCHLORIDE [Concomitant]
     Active Substance: IRINOTECAN HYDROCHLORIDE
  8. AFLIBERCEPT [Concomitant]
     Active Substance: AFLIBERCEPT
  9. Trifluridine Tipiracil [Concomitant]

REACTIONS (2)
  - Rectal cancer metastatic [Unknown]
  - Disease progression [Unknown]
